FAERS Safety Report 9379472 (Version 2)
Quarter: 2013Q3

REPORT INFORMATION
  Report Type: Spontaneous
  Country: US (occurrence: US)
  Receive Date: 20130702
  Receipt Date: 20130815
  Transmission Date: 20140515
  Serious: Yes (Hospitalization, Congenital Anomaly, Other)
  Sender: FDA-Public Use
  Company Number: US-FRI-1000046302

PATIENT
  Age: 0 Year
  Sex: Female
  Weight: 2.2 kg

DRUGS (9)
  1. LEXAPRO [Suspect]
     Indication: DEPRESSION
     Dosage: 5 MG
     Route: 064
     Dates: start: 20101110, end: 20101116
  2. LEXAPRO [Suspect]
     Dosage: 10 MG
     Route: 064
     Dates: start: 20101117, end: 20101123
  3. ZOLOFT [Suspect]
     Indication: DEPRESSION
     Dosage: 50 MG
     Route: 064
     Dates: start: 20101124
  4. PROVENTIL HFA [Concomitant]
     Indication: ASTHMA
     Dosage: 2 PUFFS AS NEEDED
  5. CEFDINIR [Concomitant]
     Dosage: 30 ML
  6. NITROFURANTOIN [Concomitant]
     Dosage: 100 MG EVERY 12 HOURS
  7. IBUPROFEN [Concomitant]
     Dosage: 600 MG FOUR TIMES DAILY AS NEEDED
  8. ONDANSETRON [Concomitant]
     Indication: NAUSEA
     Dosage: 12 MG
  9. ONDANSETRON [Concomitant]
     Indication: VOMITING

REACTIONS (6)
  - Hypoplastic left heart syndrome [Recovered/Resolved]
  - Mitral valve stenosis [Recovered/Resolved]
  - Aortic valve atresia [Recovered/Resolved]
  - Necrotising enterocolitis neonatal [Recovered/Resolved]
  - Coarctation of the aorta [Recovered/Resolved]
  - Failure to thrive [Unknown]
